FAERS Safety Report 13250621 (Version 1)
Quarter: 2017Q1

REPORT INFORMATION
  Report Type: Spontaneous
  Country: CA (occurrence: CA)
  Receive Date: 20170219
  Receipt Date: 20170219
  Transmission Date: 20170428
  Serious: Yes (Other)
  Sender: FDA-Public Use
  Company Number: CA-CONCORDIA PHARMACEUTICALS INC.-GSH201702-001149

PATIENT
  Age: 46 Year
  Sex: Female

DRUGS (10)
  1. ADVIL [Concomitant]
     Active Substance: IBUPROFEN
  2. PREDNISONE. [Suspect]
     Active Substance: PREDNISONE
     Indication: RHEUMATOID ARTHRITIS
     Route: 065
  3. METHOTREXATE SODIUM. [Suspect]
     Active Substance: METHOTREXATE SODIUM
     Indication: RHEUMATOID ARTHRITIS
     Route: 065
  4. ARAVA [Suspect]
     Active Substance: LEFLUNOMIDE
     Route: 048
  5. CELEBREX [Suspect]
     Active Substance: CELECOXIB
     Indication: RHEUMATOID ARTHRITIS
     Route: 065
  6. VESICARE [Concomitant]
     Active Substance: SOLIFENACIN SUCCINATE
  7. ARAVA [Suspect]
     Active Substance: LEFLUNOMIDE
     Indication: RHEUMATOID ARTHRITIS
     Route: 048
  8. PLAQUENIL [Suspect]
     Active Substance: HYDROXYCHLOROQUINE SULFATE
     Indication: RHEUMATOID ARTHRITIS
     Route: 048
  9. HUMIRA [Suspect]
     Active Substance: ADALIMUMAB
     Indication: RHEUMATOID ARTHRITIS
     Route: 065
  10. TYLENOL WITH CODEINE [Concomitant]
     Active Substance: ACETAMINOPHEN\CODEINE PHOSPHATE

REACTIONS (12)
  - Eye disorder [Unknown]
  - Oral candidiasis [Unknown]
  - Fatigue [Unknown]
  - Stomatitis [Unknown]
  - Condition aggravated [Unknown]
  - Impaired work ability [Unknown]
  - Mouth ulceration [Unknown]
  - Thermal burn [Unknown]
  - Feeling guilty [Unknown]
  - Drug ineffective [Unknown]
  - Depression [Unknown]
  - Pain [Unknown]

NARRATIVE: CASE EVENT DATE: 201503
